FAERS Safety Report 5951614-9 (Version None)
Quarter: 2008Q4

REPORT INFORMATION
  Report Type: 
  Country: None (occurrence: None)
  Receive Date: 20081113
  Receipt Date: 20081106
  Transmission Date: 20090506
  Serious: Yes (Other)
  Sender: FDA-Public Use
  Company Number: PHHY2008GT27471

PATIENT
  Age: 75 Year
  Sex: Male

DRUGS (3)
  1. DIOVAN [Suspect]
     Indication: HYPERTENSION
     Dosage: 320 MG, QD
     Route: 048
     Dates: start: 20070109, end: 20081021
  2. AMLODIPINE [Concomitant]
     Dosage: 5 MG/DAY
     Route: 048
  3. COMBIVENT [Concomitant]
     Indication: EMPHYSEMA
     Dosage: 1 INHALATION

REACTIONS (5)
  - ARTERIOSCLEROSIS [None]
  - BLOOD PRESSURE INADEQUATELY CONTROLLED [None]
  - DIASTOLIC DYSFUNCTION [None]
  - HYPERTENSIVE CARDIOMYOPATHY [None]
  - LEFT VENTRICULAR HYPERTROPHY [None]
